FAERS Safety Report 9014782 (Version 5)
Quarter: 2014Q1

REPORT INFORMATION
  Report Type: Spontaneous
  Country: US (occurrence: US)
  Receive Date: 20130115
  Receipt Date: 20140103
  Transmission Date: 20141002
  Serious: Yes (Hospitalization, Other)
  Sender: FDA-Public Use
  Company Number: US-009507513-2012SP019296

PATIENT
  Sex: Female
  Weight: 56.69 kg

DRUGS (3)
  1. NUVARING [Suspect]
     Indication: CONTRACEPTION
     Dosage: 3 WEEKS/REMOVE 1 WEEK
     Route: 067
     Dates: start: 20110519, end: 20110721
  2. ZOLOFT [Concomitant]
     Indication: GENERALISED ANXIETY DISORDER
     Dosage: 75 MG, UNK
     Route: 048
     Dates: start: 200903
  3. ZOLOFT [Concomitant]
     Indication: DEPRESSION

REACTIONS (9)
  - Pulmonary mass [Recovered/Resolved]
  - Pulmonary embolism [Recovered/Resolved]
  - Dizziness [Unknown]
  - Anaemia [Unknown]
  - Rash [Recovered/Resolved]
  - Pulmonary hypertension [Unknown]
  - Dilatation ventricular [Recovered/Resolved]
  - Pulmonary hypertension [Recovered/Resolved]
  - Pleuritic pain [Recovered/Resolved]
